FAERS Safety Report 21661140 (Version 1)
Quarter: 2022Q4

REPORT INFORMATION
  Report Type: Report from Study
  Country: US (occurrence: US)
  Receive Date: 20221130
  Receipt Date: 20221130
  Transmission Date: 20230113
  Serious: No
  Sender: FDA-Public Use
  Company Number: US-ABBVIE-4188018

PATIENT
  Sex: Female

DRUGS (2)
  1. SKYRIZI [Suspect]
     Active Substance: RISANKIZUMAB-RZAA
     Indication: Psoriasis
     Dosage: 150 MILLIGRAM
     Route: 058
     Dates: start: 20221025
  2. SKYRIZI [Suspect]
     Active Substance: RISANKIZUMAB-RZAA
     Indication: Psoriatic arthropathy
     Route: 058
     Dates: end: 202202

REACTIONS (6)
  - Urinary tract infection [Unknown]
  - Psoriasis [Unknown]
  - Injection site reaction [Unknown]
  - Loss of personal independence in daily activities [Unknown]
  - Injection site erythema [Unknown]
  - Injection site papule [Unknown]

NARRATIVE: CASE EVENT DATE: 20220101
